FAERS Safety Report 22131053 (Version 1)
Quarter: 2023Q1

REPORT INFORMATION
  Report Type: Spontaneous
  Country: US (occurrence: US)
  Receive Date: 20230323
  Receipt Date: 20230323
  Transmission Date: 20230417
  Serious: No
  Sender: FDA-Public Use
  Company Number: US-ALLERGAN-2242860US

PATIENT

DRUGS (1)
  1. ASPIRIN\BUTALBITAL\CAFFEINE\CODEINE [Suspect]
     Active Substance: ASPIRIN\BUTALBITAL\CAFFEINE\CODEINE
     Indication: Migraine

REACTIONS (3)
  - Illness [Unknown]
  - Migraine [Unknown]
  - Drug ineffective [Unknown]
